FAERS Safety Report 14117316 (Version 3)
Quarter: 2017Q4

REPORT INFORMATION
  Report Type: Report from Study
  Country: US (occurrence: US)
  Receive Date: 20171023
  Receipt Date: 20171214
  Transmission Date: 20180321
  Serious: Yes (Hospitalization)
  Sender: FDA-Public Use
  Company Number: US-EXELIXIS-CABO-17010720

PATIENT
  Age: 58 Year
  Sex: Male

DRUGS (13)
  1. OMEPRAZOLE. [Concomitant]
     Active Substance: OMEPRAZOLE
  2. MULTIVITAMIN [Concomitant]
     Active Substance: VITAMINS
  3. DIPHENOXYLATE/ATROPINE [Concomitant]
     Active Substance: ATROPINE\DIPHENOXYLATE
  4. JANUVIA [Concomitant]
     Active Substance: SITAGLIPTIN PHOSPHATE
  5. LOSARTAN. [Concomitant]
     Active Substance: LOSARTAN
  6. LORAZEPAM. [Concomitant]
     Active Substance: LORAZEPAM
  7. DEXAMETHASONE. [Concomitant]
     Active Substance: DEXAMETHASONE
  8. PROCHLORPERAZINE. [Concomitant]
     Active Substance: PROCHLORPERAZINE
  9. OXYCODONE [Concomitant]
     Active Substance: OXYCODONE
  10. SIMVASTATIN. [Concomitant]
     Active Substance: SIMVASTATIN
  11. CABOMETYX [Suspect]
     Active Substance: CABOZANTINIB S-MALATE
     Indication: RENAL CANCER
     Dosage: 60 MG, QD
     Route: 048
     Dates: start: 20170919
  12. METOPROLOL. [Concomitant]
     Active Substance: METOPROLOL
  13. ALLERGY RELIEF [Concomitant]

REACTIONS (1)
  - Cellulitis [Unknown]

NARRATIVE: CASE EVENT DATE: 201709
